FAERS Safety Report 25723094 (Version 1)
Quarter: 2025Q3

REPORT INFORMATION
  Report Type: Report from Study
  Country: CA (occurrence: CA)
  Receive Date: 20250825
  Receipt Date: 20250825
  Transmission Date: 20251021
  Serious: Yes (Other)
  Sender: JOHNSON AND JOHNSON
  Company Number: CA-JNJFOC-20241144881

PATIENT
  Sex: Male

DRUGS (2)
  1. REMICADE [Suspect]
     Active Substance: INFLIXIMAB
     Indication: Pyoderma gangrenosum
     Route: 042
     Dates: start: 20241023, end: 20250507
  2. REMICADE [Suspect]
     Active Substance: INFLIXIMAB
     Route: 041
     Dates: end: 20250507

REACTIONS (2)
  - Pyoderma gangrenosum [Unknown]
  - Wound infection [Recovering/Resolving]
